FAERS Safety Report 5370365-5 (Version None)
Quarter: 2007Q2

REPORT INFORMATION
  Report Type: 
  Country: None (occurrence: None)
  Receive Date: 20070626
  Receipt Date: 20070622
  Transmission Date: 20071010
  Serious: Yes (Hospitalization)
  Sender: FDA-Public Use
  Company Number: AU-BRISTOL-MYERS SQUIBB COMPANY-13823554

PATIENT
  Age: 75 Year
  Sex: Male
  Weight: 83 kg

DRUGS (4)
  1. FOSINOPRIL SODIUM [Suspect]
     Indication: ESSENTIAL HYPERTENSION
     Route: 048
     Dates: end: 20060123
  2. ESOMEPRAZOLE MAGNESIUM TRIHYDRATE [Suspect]
     Indication: OESOPHAGEAL DISORDER
     Dates: end: 20060123
  3. CALTRATE [Concomitant]
     Indication: HYPOVITAMINOSIS
     Route: 048
  4. GLUCOSAMINE [Concomitant]
     Indication: OSTEOARTHRITIS

REACTIONS (2)
  - BLOOD CREATININE INCREASED [None]
  - NEPHRITIS INTERSTITIAL [None]
